FAERS Safety Report 4528917-8 (Version None)
Quarter: 2004Q4

REPORT INFORMATION
  Report Type: 
  Country: None (occurrence: None)
  Receive Date: 20041214
  Receipt Date: 20041201
  Transmission Date: 20050328
  Serious: Yes (Other)
  Sender: FDA-Public Use
  Company Number: 2004104806

PATIENT
  Sex: Male
  Weight: 82.5547 kg

DRUGS (5)
  1. ZYRTEC [Suspect]
     Indication: SEASONAL ALLERGY
     Dosage: 10 MG (10 MG), ORAL
     Route: 048
     Dates: start: 20020101, end: 20041126
  2. NICOTINE [Suspect]
     Indication: ILL-DEFINED DISORDER
  3. METHYLPHENIDATE HCL [Concomitant]
  4. PAROXETINE HCL [Concomitant]
  5. VALSARTAN (VALSARTAN) [Concomitant]

REACTIONS (7)
  - DRUG DEPENDENCE [None]
  - DRUG WITHDRAWAL SYNDROME [None]
  - FAMILY STRESS [None]
  - NERVOUS SYSTEM DISORDER [None]
  - PRURITUS GENERALISED [None]
  - SMOKER [None]
  - URTICARIA [None]
